FAERS Safety Report 18711551 (Version 1)
Quarter: 2021Q1

REPORT INFORMATION
  Report Type: Report from Study
  Country: NL (occurrence: NL)
  Receive Date: 20210107
  Receipt Date: 20210107
  Transmission Date: 20210419
  Serious: Yes (Other)
  Sender: FDA-Public Use
  Company Number: NL-MYLANLABS-2020M1102790

PATIENT
  Sex: Male

DRUGS (1)
  1. GLATIRAMEERACETAAT MYLAN 20 MG/ML [Suspect]
     Active Substance: GLATIRAMER ACETATE
     Indication: RELAPSING-REMITTING MULTIPLE SCLEROSIS
     Dosage: 20 MILLIGRAM, QD
     Route: 058

REACTIONS (1)
  - Therapeutic product effect decreased [Unknown]
